FAERS Safety Report 20834384 (Version 1)
Quarter: 2022Q2

REPORT INFORMATION
  Report Type: Spontaneous
  Country: FR (occurrence: FR)
  Receive Date: 20220516
  Receipt Date: 20220516
  Transmission Date: 20220721
  Serious: Yes (Hospitalization, Other)
  Sender: FDA-Public Use
  Company Number: FR-TAKEDA-2022TUS030984

PATIENT
  Age: 65 Year
  Sex: Male

DRUGS (1)
  1. HYQVIA [Suspect]
     Active Substance: HUMAN IMMUNOGLOBULIN G\HYALURONIDASE RECOMBINANT HUMAN
     Indication: Product used for unknown indication
     Dosage: UNK
     Route: 065
     Dates: start: 202111

REACTIONS (6)
  - Encephalitis [Unknown]
  - Phlebitis [Unknown]
  - Hypokalaemia [Unknown]
  - Pain in extremity [Unknown]
  - Injection site extravasation [Unknown]
  - Accidental underdose [Unknown]

NARRATIVE: CASE EVENT DATE: 20220309
